FAERS Safety Report 19751183 (Version 4)
Quarter: 2022Q3

REPORT INFORMATION
  Report Type: Other
  Country: BE (occurrence: None)
  Receive Date: 20210826
  Receipt Date: 20220714
  Transmission Date: 20221027
  Serious: Yes (Hospitalization)
  Sender: FDA-Public Use
  Company Number: BE-ROCHE-2888118

PATIENT
  Age: 40 Year
  Sex: Female
  Weight: 79.6 kg

DRUGS (19)
  1. OCRELIZUMAB [Suspect]
     Active Substance: OCRELIZUMAB
     Indication: Relapsing-remitting multiple sclerosis
     Dosage: 04/JUN/2020?12/NOV/2020, MOST RECENT DOSE (600 MG AND TOTAL VOLUME: 500 ML) PRIOR TO AE/SAE.
     Route: 042
     Dates: start: 20200518
  2. RIVOTRIL [Concomitant]
     Active Substance: CLONAZEPAM
     Indication: Prophylaxis
     Route: 048
     Dates: start: 20190329
  3. ACETAMINOPHEN [Concomitant]
     Active Substance: ACETAMINOPHEN
     Indication: Multiple sclerosis
     Route: 048
     Dates: start: 20191117
  4. TRAMADOL HYDROCHLORIDE [Concomitant]
     Active Substance: TRAMADOL HYDROCHLORIDE
     Indication: Multiple sclerosis
     Route: 048
     Dates: start: 20191117
  5. LYRICA [Concomitant]
     Active Substance: PREGABALIN
     Indication: Prophylaxis
     Route: 048
     Dates: start: 20191127
  6. COENZYME Q10 [Concomitant]
     Active Substance: DIETARY SUPPLEMENT\UBIDECARENONE
     Route: 048
     Dates: start: 20191205
  7. DALFAMPRIDINE [Concomitant]
     Active Substance: DALFAMPRIDINE
     Route: 048
     Dates: start: 20200127
  8. IBUPROFEN [Concomitant]
     Active Substance: IBUPROFEN
     Route: 048
     Dates: start: 20200827
  9. TIZANIDINE [Concomitant]
     Active Substance: TIZANIDINE
     Route: 048
     Dates: start: 20210119
  10. AUGMENTIN [Concomitant]
     Active Substance: AMOXICILLIN\CLAVULANATE POTASSIUM
     Dosage: NO
     Dates: start: 20210319, end: 20210319
  11. SOLU-MEDROL [Concomitant]
     Active Substance: METHYLPREDNISOLONE SODIUM SUCCINATE
     Dosage: ONCE BEFORE INFUSION
     Route: 042
     Dates: start: 20200518, end: 20200518
  12. SOLU-MEDROL [Concomitant]
     Active Substance: METHYLPREDNISOLONE SODIUM SUCCINATE
     Dosage: ONCE BEFORE INFUSION
     Route: 042
     Dates: start: 20200604, end: 20200604
  13. SOLU-MEDROL [Concomitant]
     Active Substance: METHYLPREDNISOLONE SODIUM SUCCINATE
     Dosage: ONCE BEFORE INFUSION
     Route: 042
     Dates: start: 20201112, end: 20201112
  14. CETIRIZINE HYDROCHLORIDE [Concomitant]
     Active Substance: CETIRIZINE HYDROCHLORIDE
     Route: 048
     Dates: start: 20200518, end: 20200518
  15. CETIRIZINE HYDROCHLORIDE [Concomitant]
     Active Substance: CETIRIZINE HYDROCHLORIDE
     Route: 048
     Dates: start: 20200604, end: 20200604
  16. CETIRIZINE HYDROCHLORIDE [Concomitant]
     Active Substance: CETIRIZINE HYDROCHLORIDE
     Route: 048
     Dates: start: 20201112, end: 20201112
  17. DAFALGAN [Concomitant]
     Active Substance: ACETAMINOPHEN
     Route: 048
     Dates: start: 20200518, end: 20200518
  18. DAFALGAN [Concomitant]
     Active Substance: ACETAMINOPHEN
     Route: 048
     Dates: start: 20200604, end: 20200604
  19. DAFALGAN [Concomitant]
     Active Substance: ACETAMINOPHEN
     Route: 048
     Dates: start: 20201112, end: 20201112

REACTIONS (4)
  - Chest pain [Recovered/Resolved]
  - Dyspnoea exertional [Recovered/Resolved]
  - Pneumonia [Recovered/Resolved]
  - Pulmonary embolism [Recovered/Resolved]

NARRATIVE: CASE EVENT DATE: 20200923
